FAERS Safety Report 4806395-9 (Version None)
Quarter: 2005Q4

REPORT INFORMATION
  Report Type: 
  Country: None (occurrence: None)
  Receive Date: 20051019
  Receipt Date: 20051011
  Transmission Date: 20060501
  Serious: Yes (Hospitalization)
  Sender: FDA-Public Use
  Company Number: 440009M05USA

PATIENT
  Age: 47 Year
  Sex: Female

DRUGS (1)
  1. ZORBTIVE (SOMATROPIN) [Suspect]
     Indication: SHORT-BOWEL SYNDROME
     Dates: start: 20050930

REACTIONS (2)
  - DEPRESSED LEVEL OF CONSCIOUSNESS [None]
  - MIGRAINE [None]
